FAERS Safety Report 5951996-8 (Version None)
Quarter: 2008Q4

REPORT INFORMATION
  Report Type: 
  Country: None (occurrence: None)
  Receive Date: 20081113
  Receipt Date: 20071024
  Transmission Date: 20090506
  Serious: No
  Sender: FDA-Public Use
  Company Number: A0690607A

PATIENT
  Sex: Male

DRUGS (1)
  1. COREG [Suspect]
     Route: 048

REACTIONS (1)
  - BLOOD GLUCOSE FLUCTUATION [None]
